FAERS Safety Report 17702570 (Version 2)
Quarter: 2020Q2

REPORT INFORMATION
  Report Type: Report from Study
  Country: CA (occurrence: CA)
  Receive Date: 20200423
  Receipt Date: 20200508
  Transmission Date: 20200714
  Serious: Yes (Death)
  Sender: FDA-Public Use
  Company Number: CA-TAIHO ONCOLOGY  INC-EU-2020-01325

PATIENT
  Sex: Male
  Weight: 65.2 kg

DRUGS (1)
  1. LONSURF [Suspect]
     Active Substance: TIPIRACIL HYDROCHLORIDE\TRIFLURIDINE
     Indication: GASTROOESOPHAGEAL CANCER
     Dosage: CYCLE 1 TO 5
     Route: 048
     Dates: start: 20191209

REACTIONS (1)
  - Gastrooesophageal cancer [Fatal]
